FAERS Safety Report 17303458 (Version 2)
Quarter: 2020Q1

REPORT INFORMATION
  Report Type: Spontaneous
  Country: CH (occurrence: CH)
  Receive Date: 20200122
  Receipt Date: 20200128
  Transmission Date: 20200409
  Serious: Yes (Other)
  Sender: FDA-Public Use
  Company Number: CH-009507513-2001CHE007028

PATIENT
  Age: 37 Year
  Sex: Female

DRUGS (17)
  1. PUREGON [FOLLITROPIN BETA] [Suspect]
     Active Substance: FOLLITROPIN
     Indication: OOCYTE HARVEST
     Dosage: UNK
     Dates: start: 201901, end: 201901
  2. DECAPEPTYL (ACETATE) [Suspect]
     Active Substance: TRIPTORELIN ACETATE
     Indication: OOCYTE HARVEST
     Dosage: 0.1 MILLIGRAM IN TOTAL
     Route: 058
     Dates: start: 201810, end: 201810
  3. MERIONAL [Suspect]
     Active Substance: MENOTROPINS
     Indication: OOCYTE HARVEST
     Dosage: UNK
     Dates: start: 201901, end: 201901
  4. ORGALUTRAN [Suspect]
     Active Substance: GANIRELIX ACETATE
     Indication: OOCYTE HARVEST
     Dosage: 0.25 MG IN TOTAL
     Route: 058
     Dates: start: 201810, end: 201810
  5. PUREGON [FOLLITROPIN BETA] [Suspect]
     Active Substance: FOLLITROPIN
  6. MENOPUR [Suspect]
     Active Substance: FOLLITROPIN\LUTEINIZING HORMONE
     Indication: OOCYTE HARVEST
     Dosage: UNK
     Dates: start: 201901, end: 201901
  7. GONAL-F [Suspect]
     Active Substance: FOLLITROPIN
     Indication: OOCYTE HARVEST
     Dosage: 30 INTERNATIONAL UNIT IN TOTAL
     Route: 058
     Dates: start: 201810, end: 201810
  8. AZITHROMYCIN ANHYDROUS. [Suspect]
     Active Substance: AZITHROMYCIN ANHYDROUS
     Indication: OOCYTE HARVEST
     Dosage: 1 GRAM, IN TOTAL
     Dates: start: 201810, end: 201810
  9. ETHINYL ESTRADIOL (+) LEVONORGESTREL [Suspect]
     Active Substance: ETHINYL ESTRADIOL\LEVONORGESTREL
     Indication: OOCYTE HARVEST
     Dosage: 1 DOSAGE FORM, INGREDIENT (ETHINYLESTRADIOL): 0.02MG; INGREDIENT (LEVONORGESTREL): 0.1 MG
     Dates: start: 201901, end: 201901
  10. DECAPEPTYL (ACETATE) [Suspect]
     Active Substance: TRIPTORELIN ACETATE
     Dosage: 0.1 MILLIGRAM IN TOTAL
     Route: 058
     Dates: start: 201901, end: 201901
  11. ZOLOFT [Concomitant]
     Active Substance: SERTRALINE HYDROCHLORIDE
     Dosage: UNK
     Dates: start: 201802, end: 201810
  12. TRAZODONE HYDROCHLORIDE. [Concomitant]
     Active Substance: TRAZODONE HYDROCHLORIDE
     Indication: OOCYTE HARVEST
     Dosage: UNK
     Dates: start: 201808, end: 201810
  13. TRAZODONE HYDROCHLORIDE. [Concomitant]
     Active Substance: TRAZODONE HYDROCHLORIDE
     Dosage: UNK
     Dates: start: 201901, end: 2019
  14. GONAL-F [Suspect]
     Active Substance: FOLLITROPIN
     Dosage: UNK
     Route: 058
     Dates: start: 201901, end: 201901
  15. CETROTIDE [Suspect]
     Active Substance: CETRORELIX ACETATE
     Indication: OOCYTE HARVEST
     Dosage: UNK
     Dates: start: 201901, end: 201901
  16. DALMADORM [Concomitant]
     Active Substance: FLURAZEPAM HYDROCHLORIDE
     Dosage: UNK
     Dates: start: 201802, end: 201807
  17. IMOVANE [Concomitant]
     Active Substance: ZOPICLONE
     Dosage: UNK
     Dates: start: 201802, end: 201807

REACTIONS (1)
  - Premenstrual syndrome [Recovering/Resolving]

NARRATIVE: CASE EVENT DATE: 201810
